FAERS Safety Report 9440546 (Version 1)
Quarter: 2013Q3

REPORT INFORMATION
  Report Type: Spontaneous
  Country: US (occurrence: None)
  Receive Date: 20130801
  Receipt Date: 20130801
  Transmission Date: 20140515
  Serious: Yes (Death)
  Sender: FDA-Public Use
  Company Number: ADR-2013UNK131

PATIENT
  Sex: 0

DRUGS (2)
  1. NEVIRAPINE [Suspect]
     Indication: ACQUIRED IMMUNODEFICIENCY SYNDROME
     Route: 048
     Dates: start: 20100105
  2. EPZICOM, EPZ [Concomitant]

REACTIONS (3)
  - Pregnancy [None]
  - Abortion induced [None]
  - Exposure during pregnancy [None]
